FAERS Safety Report 12477804 (Version 1)
Quarter: 2016Q2

REPORT INFORMATION
  Report Type: Spontaneous
  Country: US (occurrence: US)
  Receive Date: 20160617
  Receipt Date: 20160617
  Transmission Date: 20160815
  Serious: Yes (Hospitalization)
  Sender: FDA-Public Use
  Company Number: US-AMGEN-US142620

PATIENT
  Age: 20 Year
  Sex: Female
  Weight: 56.3 kg

DRUGS (3)
  1. FERROUS SULFATE. [Concomitant]
     Active Substance: FERROUS SULFATE
  2. ARANESP [Suspect]
     Active Substance: DARBEPOETIN ALFA
     Indication: RENAL TRANSPLANT
     Dosage: 60 MUG, QWK
     Dates: start: 20031030
  3. SIROLIMUS. [Concomitant]
     Active Substance: SIROLIMUS

REACTIONS (9)
  - Seizure [Recovered/Resolved]
  - Foetal heart rate decreased [Recovered/Resolved]
  - Hydronephrosis [Recovered/Resolved]
  - Acute kidney injury [Recovered/Resolved]
  - Hypertension [Unknown]
  - Condition aggravated [Unknown]
  - Pre-eclampsia [Recovered/Resolved]
  - Urinary tract infection [Recovered/Resolved]
  - Transplant rejection [Unknown]

NARRATIVE: CASE EVENT DATE: 200401
